FAERS Safety Report 5050681-7 (Version None)
Quarter: 2006Q3

REPORT INFORMATION
  Report Type: 
  Country: None (occurrence: None)
  Receive Date: 20060710
  Receipt Date: 20060121
  Transmission Date: 20061208
  Serious: Yes (Other)
  Sender: FDA-Public Use
  Company Number: GXKR2006FR00591

PATIENT
  Age: 12 Year
  Sex: Female

DRUGS (1)
  1. ALPRAZOLAM (NGX)(ALPRAZOLAM) 0.5MG [Suspect]

REACTIONS (3)
  - DRUG ABUSER [None]
  - SEXUAL ASSAULT VICTIM [None]
  - VICTIM OF CHILD ABUSE [None]
